FAERS Safety Report 12235102 (Version 1)
Quarter: 2016Q2

REPORT INFORMATION
  Report Type: Not Available
  Country: None (occurrence: US)
  Receive Date: 20160404
  Receipt Date: 20160404
  Transmission Date: 20160815
  Serious: No
  Sender: FDA-Public Use
  Company Number: US-AKORN-12828

PATIENT

DRUGS (1)
  1. APRACLONIDE OPHTHALMIC SOLUTION, USP [Suspect]
     Active Substance: APRACLONIDINE HYDROCHLORIDE

REACTIONS (5)
  - Drug effect prolonged [Recovered/Resolved]
  - Product quality issue [None]
  - Eye pain [Recovered/Resolved]
  - Mydriasis [Recovered/Resolved]
  - Eye irritation [Recovered/Resolved]
